FAERS Safety Report 4840313-2 (Version None)
Quarter: 2005Q4

REPORT INFORMATION
  Report Type: 
  Country: None (occurrence: None)
  Receive Date: 20051021
  Receipt Date: 20050721
  Transmission Date: 20060501
  Serious: No
  Sender: FDA-Public Use
  Company Number: 2005109522

PATIENT

DRUGS (1)
  1. SOMAVERT [Suspect]
     Indication: ILL-DEFINED DISORDER

REACTIONS (1)
  - LIVER FUNCTION TEST ABNORMAL [None]
